FAERS Safety Report 12521186 (Version 1)
Quarter: 2016Q3

REPORT INFORMATION
  Report Type: Spontaneous
  Country: JP (occurrence: JP)
  Receive Date: 20160701
  Receipt Date: 20160701
  Transmission Date: 20161109
  Serious: Yes (Hospitalization)
  Sender: FDA-Public Use
  Company Number: JP-ASTELLAS-2016JP010523

PATIENT
  Sex: Female

DRUGS (1)
  1. BETANIS [Suspect]
     Active Substance: MIRABEGRON
     Indication: NOCTURIA
     Route: 048
     Dates: start: 201511, end: 20160623

REACTIONS (2)
  - Interstitial lung disease [Unknown]
  - Intentional underdose [Unknown]

NARRATIVE: CASE EVENT DATE: 201511
